FAERS Safety Report 20620679 (Version 1)
Quarter: 2022Q1

REPORT INFORMATION
  Report Type: Spontaneous
  Country: AU (occurrence: AU)
  Receive Date: 20220322
  Receipt Date: 20220322
  Transmission Date: 20220424
  Serious: Yes (Hospitalization, Other)
  Sender: FDA-Public Use
  Company Number: AU-SA-SAC20220314001001

PATIENT
  Age: 49 Year
  Sex: Female

DRUGS (7)
  1. ACETAMINOPHEN [Suspect]
     Active Substance: ACETAMINOPHEN
     Dosage: 1 G, QID
     Route: 048
  2. FLUCLOXACILLIN [Suspect]
     Active Substance: FLUCLOXACILLIN
     Dosage: 1 G, QID
     Route: 041
  3. VANCOMYCIN [Suspect]
     Active Substance: VANCOMYCIN
  4. OXYCODONE [Suspect]
     Active Substance: OXYCODONE
     Dosage: UNK, PRN
     Route: 048
  5. ENOXAPARIN SODIUM [Suspect]
     Active Substance: ENOXAPARIN SODIUM
     Dosage: 60 MG, QD
     Route: 058
  6. LORATADINE [Suspect]
     Active Substance: LORATADINE
     Dosage: 10 MG, QD
  7. CLINDAMYCIN PHOSPHATE [Suspect]
     Active Substance: CLINDAMYCIN PHOSPHATE
     Dosage: 600 MG, TID
     Route: 041

REACTIONS (2)
  - Pallor [Recovered/Resolved]
  - Rash pruritic [Recovered/Resolved]

NARRATIVE: CASE EVENT DATE: 20210712
